FAERS Safety Report 9884967 (Version 1)
Quarter: 2014Q1

REPORT INFORMATION
  Report Type: Spontaneous
  Country: US (occurrence: None)
  Receive Date: 20140207
  Receipt Date: 20140207
  Transmission Date: 20141002
  Serious: No
  Sender: FDA-Public Use
  Company Number: None

PATIENT
  Age: 71 Year
  Sex: Female

DRUGS (1)
  1. SENSIPAR [Suspect]
     Route: 048
     Dates: start: 201401

REACTIONS (3)
  - Irritability [None]
  - Restlessness [None]
  - Confusional state [None]
